FAERS Safety Report 6300488-5 (Version None)
Quarter: 2009Q3

REPORT INFORMATION
  Report Type: 
  Country: None (occurrence: None)
  Receive Date: 20090803
  Receipt Date: 20090722
  Transmission Date: 20100115
  Serious: Yes (Other)
  Sender: FDA-Public Use
  Company Number: IND1-US-2009-0012

PATIENT
  Age: 34 Year
  Sex: Female

DRUGS (7)
  1. INDOCIN SR [Suspect]
     Dosage: 75 MG (2 IN 1 D) PER ORAL
     Route: 048
     Dates: start: 20081218, end: 20081222
  2. DESOGESTREL (DESOGESTREL) (DESOGESTREL) [Concomitant]
  3. ETHINYLESTRADIOL (ETHINYLESTRADIOL) (ETHINYLESTRADIOL) [Concomitant]
  4. ENEBREL (ETANERCEPT) (ETANERCEPT) [Concomitant]
  5. LIDEX 0.05% OINTMENT (FLUOCINONIDE)(FLUOCINONIDE) [Concomitant]
  6. LIDEX SOLUTION (FLUOCINONIDE) (FLUOCINONIDE) [Concomitant]
  7. VITAMIN D3 (COLECALCIFEROL) (COLECALCIFEROL) [Concomitant]

REACTIONS (1)
  - HEADACHE [None]
